FAERS Safety Report 9471356 (Version 1)
Quarter: 2013Q3

REPORT INFORMATION
  Report Type: Spontaneous
  Country: US (occurrence: US)
  Receive Date: 20130822
  Receipt Date: 20130822
  Transmission Date: 20140515
  Serious: No
  Sender: FDA-Public Use
  Company Number: US-009507513-1308USA006148

PATIENT
  Age: 32 Year
  Sex: 0
  Weight: 74.38 kg

DRUGS (1)
  1. NUVARING [Suspect]
     Dosage: 1 DF, UNK
     Route: 067

REACTIONS (1)
  - Pain in jaw [Unknown]
